FAERS Safety Report 7282032-1 (Version None)
Quarter: 2011Q1

REPORT INFORMATION
  Report Type: 
  Country: None (occurrence: None)
  Receive Date: 20110208
  Receipt Date: 20110120
  Transmission Date: 20110831
  Serious: Yes (Hospitalization)
  Sender: FDA-Public Use
  Company Number: PHHY2011US04630

PATIENT
  Age: 65 Year
  Sex: Male

DRUGS (1)
  1. LEUPRORELIN [Suspect]
     Dosage: 45 MG,  EVERY 6 MONTHS
     Route: 058

REACTIONS (9)
  - MANIA [None]
  - AGITATION [None]
  - SPEECH DISORDER [None]
  - ABNORMAL BEHAVIOUR [None]
  - INSOMNIA [None]
  - AGGRESSION [None]
  - PARANOIA [None]
  - PERSECUTORY DELUSION [None]
  - VERBAL ABUSE [None]
